FAERS Safety Report 12269613 (Version 3)
Quarter: 2016Q2

REPORT INFORMATION
  Report Type: Report from Study
  Country: FR (occurrence: FR)
  Receive Date: 20160414
  Receipt Date: 20160512
  Transmission Date: 20160815
  Serious: Yes (Hospitalization)
  Sender: FDA-Public Use
  Company Number: FR-ABBVIE-16P-056-1596311-00

PATIENT
  Age: 69 Year
  Sex: Female
  Weight: 61 kg

DRUGS (22)
  1. LEDERFOLINE [Concomitant]
     Active Substance: LEUCOVORIN CALCIUM
     Indication: PROPHYLAXIS
     Dates: start: 20160111
  2. ORACILLINE [Concomitant]
     Active Substance: PENICILLIN V
     Indication: INFECTION PROPHYLAXIS
     Dates: start: 20160111
  3. ZOPHREN [Concomitant]
     Active Substance: ONDANSETRON
     Indication: PROPHYLAXIS OF NAUSEA AND VOMITING
     Dates: start: 20160229, end: 20160303
  4. PARACETAMOL [Concomitant]
     Active Substance: ACETAMINOPHEN
     Indication: PREMEDICATION
     Dates: start: 20160229, end: 20160229
  5. VENETOCLAX [Suspect]
     Active Substance: VENETOCLAX
     Indication: NON-HODGKIN^S LYMPHOMA
     Dosage: MOST RECENT DOSE (800 MG) ON 25/MAR/2016 PRIOR TO AE ONSET
     Route: 048
     Dates: start: 20160118
  6. RITUXIMAB [Suspect]
     Active Substance: RITUXIMAB
     Indication: NON-HODGKIN^S LYMPHOMA
     Dosage: MOST RECENT DOSE (611)PRIOR TO AE ONSET  21/MAR/2016 AT 16:45
     Route: 042
     Dates: start: 20160115
  7. DOXORUBICIN [Suspect]
     Active Substance: DOXORUBICIN
     Indication: NON-HODGKIN^S LYMPHOMA
     Dosage: MOST RECENT DOSE(83.6) PRIOR TO AE ONSET ON 21/MAR/2016 AT 19:30
     Route: 042
     Dates: start: 20160115
  8. LYSANXIA [Concomitant]
     Active Substance: PRAZEPAM
     Indication: ANXIETY
  9. ZELITREX [Concomitant]
     Active Substance: VALACYCLOVIR HYDROCHLORIDE
     Indication: INFECTION PROPHYLAXIS
     Dates: start: 20160111
  10. PARACETAMOL [Concomitant]
     Active Substance: ACETAMINOPHEN
     Dates: start: 20160321, end: 20160321
  11. VINCRISTINE [Suspect]
     Active Substance: VINCRISTINE
     Indication: NON-HODGKIN^S LYMPHOMA
     Dosage: MOST RECENT DOSE (2)PRIOR TO AE ONSET ON 21/MAR/2016 AT 20:25
     Route: 042
     Dates: start: 20160115
  12. PREDNISONE. [Suspect]
     Active Substance: PREDNISONE
     Indication: NON-HODGKIN^S LYMPHOMA
     Dosage: MOST RECENT DOSE(100) PRIOR TO AE ONSETON 21/MAR/2016
     Route: 065
     Dates: start: 20160115
  13. ZOPHREN [Concomitant]
     Active Substance: ONDANSETRON
     Dates: start: 20160321, end: 20160322
  14. MESNA. [Concomitant]
     Active Substance: MESNA
     Indication: PROPHYLAXIS
     Dates: start: 20160229, end: 20160229
  15. MESNA. [Concomitant]
     Active Substance: MESNA
     Dates: start: 20160321, end: 20160322
  16. ADENOSINE. [Concomitant]
     Active Substance: ADENOSINE
     Indication: TACHYCARDIA
     Dates: start: 20160308, end: 20160308
  17. NEUPOGEN [Concomitant]
     Active Substance: FILGRASTIM
     Indication: PROPHYLAXIS
     Dates: start: 20160325
  18. CYCLOPHOSPHAMIDE. [Suspect]
     Active Substance: CYCLOPHOSPHAMIDE
     Indication: NON-HODGKIN^S LYMPHOMA
     Dosage: MOST RECENT DOSE(1252)PRIOR TO AE ONSET ON 21/MAR/2016 AT 21:00
     Route: 042
     Dates: start: 20160115
  19. POLARAMINE [Concomitant]
     Active Substance: DEXCHLORPHENIRAMINE MALEATE
     Dates: start: 20160321, end: 20160321
  20. POLARAMINE [Concomitant]
     Active Substance: DEXCHLORPHENIRAMINE MALEATE
     Indication: PREMEDICATION
     Dates: start: 20160229, end: 20160229
  21. BACTRIM [Concomitant]
     Active Substance: SULFAMETHOXAZOLE\TRIMETHOPRIM
     Indication: INFECTION PROPHYLAXIS
     Dates: start: 20160111
  22. METHOTREXATE [Concomitant]
     Active Substance: METHOTREXATE
     Indication: PROPHYLAXIS
     Route: 037
     Dates: start: 20160321, end: 20160321

REACTIONS (1)
  - Supraventricular tachycardia [Recovered/Resolved]

NARRATIVE: CASE EVENT DATE: 20160325
